FAERS Safety Report 5628414-2 (Version None)
Quarter: 2008Q1

REPORT INFORMATION
  Report Type: 
  Country: None (occurrence: None)
  Receive Date: 20080131
  Receipt Date: 20071226
  Transmission Date: 20080703
  Serious: No
  Sender: FDA-Public Use
  Company Number: 163-21880-07121416

PATIENT
  Age: 55 Year
  Sex: Male

DRUGS (2)
  1. REVLIMID [Suspect]
     Indication: MULTIPLE MYELOMA
     Dosage: 15 MG, DAILY X 21 DAYS, ORAL; 25 MG, DAILY X 21 DAYS, ORAL;
     Route: 048
     Dates: start: 20070629, end: 20070701
  2. REVLIMID [Suspect]
     Indication: MULTIPLE MYELOMA
     Dosage: 15 MG, DAILY X 21 DAYS, ORAL; 25 MG, DAILY X 21 DAYS, ORAL;
     Route: 048
     Dates: start: 20070724

REACTIONS (2)
  - GAIT DISTURBANCE [None]
  - NEUROPATHY PERIPHERAL [None]
